FAERS Safety Report 5813336-4 (Version None)
Quarter: 2008Q3

REPORT INFORMATION
  Report Type: 
  Country: None (occurrence: None)
  Receive Date: 20080717
  Receipt Date: 20080714
  Transmission Date: 20090109
  Serious: Yes (Other)
  Sender: FDA-Public Use
  Company Number: US-BRISTOL-MYERS SQUIBB COMPANY-14262364

PATIENT
  Sex: Male

DRUGS (1)
  1. ORENCIA [Suspect]

REACTIONS (1)
  - THROMBOCYTOPENIA [None]
